FAERS Safety Report 5388169-6 (Version None)
Quarter: 2007Q3

REPORT INFORMATION
  Report Type: 
  Country: None (occurrence: None)
  Receive Date: 20070716
  Receipt Date: 20070105
  Transmission Date: 20080115
  Serious: No
  Sender: FDA-Public Use
  Company Number: A0634049A

PATIENT
  Age: 47 Year

DRUGS (2)
  1. NICORETTE [Suspect]
     Dates: end: 20070103
  2. MEMBERS MARK NICOTINE GUM, ORIGINAL [Suspect]
     Route: 002

REACTIONS (2)
  - INTENTIONAL DRUG MISUSE [None]
  - NICOTINE DEPENDENCE [None]
